FAERS Safety Report 4681614-0 (Version None)
Quarter: 2005Q2

REPORT INFORMATION
  Report Type: 
  Country: None (occurrence: None)
  Receive Date: 20050602
  Receipt Date: 20050520
  Transmission Date: 20051028
  Serious: Yes (Death, Hospitalization, Other)
  Sender: FDA-Public Use
  Company Number: 2005042034

PATIENT
  Age: 69 Year
  Sex: Male

DRUGS (19)
  1. NEURONTIN [Suspect]
     Indication: ILL-DEFINED DISORDER
     Dosage: 200 MG (100 MG, 2 IN 1 D), ORAL
     Route: 048
     Dates: start: 20040914
  2. RAPAMUNE [Concomitant]
  3. MINOXIDIL [Concomitant]
  4. HUMALOG [Concomitant]
  5. LANTUS [Concomitant]
  6. NEORAL [Concomitant]
  7. PREDNISONE TAB [Concomitant]
  8. EPOETIN ALFA (EPOETIN ALFA) [Concomitant]
  9. METOPROLOL TARTRATE [Concomitant]
  10. PERCOCET [Concomitant]
  11. PANTOPRAZOLE SODIUM [Concomitant]
  12. QUININE SULFATE [Concomitant]
  13. DYNACIRC [Concomitant]
  14. ALDACTONE [Concomitant]
  15. FUROSEMIDE [Concomitant]
  16. NYSTATIN [Concomitant]
  17. PREVACID [Concomitant]
  18. MAALOX (ALUMINIUM HYDROXIDE GEL, MAGNESIUM HYDROXIDE) [Concomitant]
  19. ASPIRIN [Concomitant]

REACTIONS (24)
  - ABDOMINAL TENDERNESS [None]
  - ANURIA [None]
  - BLOOD CREATININE INCREASED [None]
  - BLOOD POTASSIUM INCREASED [None]
  - BRAIN DEATH [None]
  - CARDIAC ARREST [None]
  - CLOSTRIDIAL INFECTION [None]
  - DEHYDRATION [None]
  - FAILURE TO THRIVE [None]
  - GASTROINTESTINAL HAEMORRHAGE [None]
  - HAEMATEMESIS [None]
  - HAEMATOCHEZIA [None]
  - HAEMOGLOBIN DECREASED [None]
  - HEPATIC FAILURE [None]
  - INTERNATIONAL NORMALISED RATIO INCREASED [None]
  - METABOLIC ACIDOSIS [None]
  - MULTI-ORGAN FAILURE [None]
  - PNEUMONIA [None]
  - RENAL FAILURE [None]
  - RESPIRATORY ARREST [None]
  - SEPSIS [None]
  - SHOCK HAEMORRHAGIC [None]
  - URINE OUTPUT DECREASED [None]
  - VASCULAR RESISTANCE SYSTEMIC DECREASED [None]
